FAERS Safety Report 19990376 (Version 5)
Quarter: 2022Q1

REPORT INFORMATION
  Report Type: Report from Study
  Country: CN (occurrence: CN)
  Receive Date: 20211025
  Receipt Date: 20220104
  Transmission Date: 20220423
  Serious: Yes (Hospitalization)
  Sender: FDA-Public Use
  Company Number: CN-SHANGHAI LIANBIO DEVELOPMENT CO., LTD.-LIA-2021-000002A

PATIENT
  Age: 33 Year
  Sex: Female
  Weight: 39 kg

DRUGS (26)
  1. INFIGRATINIB [Suspect]
     Active Substance: INFIGRATINIB
     Indication: Adenocarcinoma
     Dosage: 125 MILLIGRAM, QD
     Route: 048
     Dates: start: 20210812, end: 20210827
  2. INFIGRATINIB [Suspect]
     Active Substance: INFIGRATINIB
     Dosage: 100 MILLIGRAM, QD
     Route: 048
     Dates: start: 20210831, end: 20210901
  3. INFIGRATINIB [Suspect]
     Active Substance: INFIGRATINIB
     Dosage: 100 MILLIGRAM, QD
     Route: 048
     Dates: start: 20210909, end: 20210929
  4. INFIGRATINIB [Suspect]
     Active Substance: INFIGRATINIB
     Dosage: 75 MILLIGRAM, QD
     Route: 048
     Dates: start: 20211021, end: 20211110
  5. INFIGRATINIB [Suspect]
     Active Substance: INFIGRATINIB
     Dosage: 75 MILLIGRAM, QD
     Route: 048
     Dates: start: 20211118, end: 20211121
  6. VITAMIN B12 [Concomitant]
     Active Substance: CYANOCOBALAMIN
     Indication: Anaemia
     Dosage: 50 MICROGRAM, QD
     Route: 048
     Dates: start: 20210715, end: 20211009
  7. GLYCYRRHIZIN [Concomitant]
     Active Substance: GLYCYRRHIZIN
     Indication: Alanine aminotransferase increased
     Dosage: 2 TABLETS, TID
     Route: 048
     Dates: start: 20210831, end: 20211009
  8. PHOSPHOLIPID [Concomitant]
     Active Substance: PHOSPHOLIPID
     Indication: Alanine aminotransferase increased
     Dosage: 456 MILLIGRAM, TID
     Route: 048
     Dates: start: 20210831, end: 20211009
  9. POLYETHYLENE GLYCOL COMPOUND [Concomitant]
     Indication: Dry eye
     Dosage: 0.1 MILLILITER, QID
     Route: 047
     Dates: start: 20210831, end: 20211009
  10. POLYSACCHARIDE IRON [Concomitant]
     Indication: Anaemia
     Dosage: 2 PILLS, QD
     Route: 048
     Dates: start: 20210925, end: 20211009
  11. TIOPRONIN SODIUM [Concomitant]
     Indication: Alanine aminotransferase increased
     Dosage: 0.2 GRAM, QD
     Route: 042
     Dates: start: 20210926, end: 20210930
  12. TIOPRONIN SODIUM [Concomitant]
     Indication: Aspartate aminotransferase increased
  13. GLUTATHIONE [Concomitant]
     Active Substance: GLUTATHIONE
     Indication: Alanine aminotransferase increased
     Dosage: 1.2 GRAM, QD
     Route: 042
     Dates: start: 20210926, end: 20210930
  14. GLUTATHIONE [Concomitant]
     Active Substance: GLUTATHIONE
     Indication: Aspartate aminotransferase increased
  15. VITAMIN C [Concomitant]
     Active Substance: ASCORBIC ACID
     Dosage: 3 GRAM, QD
     Route: 042
     Dates: start: 20210926, end: 20210930
  16. VITAMIN B6 [Concomitant]
     Active Substance: PYRIDOXINE HYDROCHLORIDE
     Dosage: 0.2 GRAM, QD
     Route: 042
     Dates: start: 20210926, end: 20210930
  17. ACETAMINOPHEN\OXYCODONE HYDROCHLORIDE [Concomitant]
     Active Substance: ACETAMINOPHEN\OXYCODONE HYDROCHLORIDE
     Indication: Abdominal pain
     Dosage: 5 MILLIGRAM, PM
     Route: 048
     Dates: start: 20211001
  18. POTASSIUM CHLORIDE IN SODIUM CHLORIDE [Concomitant]
     Active Substance: POTASSIUM CHLORIDE\SODIUM CHLORIDE
     Indication: Mineral supplementation
     Dosage: 1.5 GRAM
     Route: 042
     Dates: start: 20211009, end: 20211009
  19. COMPOUND AMINO ACID CAPSULES (9-5) [Concomitant]
     Indication: Nutritional supplementation
     Dosage: 500 MILLILITER
     Route: 042
     Dates: start: 20211009, end: 20211009
  20. COMPOUND AMINO ACID CAPSULES (9-5) [Concomitant]
     Dosage: 500 MILLILITER, QD
     Route: 042
     Dates: start: 20211012, end: 20211015
  21. DEXTROSE\SODIUM CHLORIDE [Concomitant]
     Active Substance: DEXTROSE\SODIUM CHLORIDE
     Indication: Infusion
     Dosage: 500 MILLILITER
     Route: 042
     Dates: start: 20211009, end: 20211009
  22. OCTREOTIDE ACETATE [Concomitant]
     Active Substance: OCTREOTIDE ACETATE
     Indication: Amylase increased
     Dosage: 0.6 MILLIGRAM
     Route: 042
     Dates: start: 20211009, end: 20211009
  23. OCTREOTIDE ACETATE [Concomitant]
     Active Substance: OCTREOTIDE ACETATE
     Indication: Lipase increased
     Dosage: 50 MILLILITER, QD
     Route: 042
     Dates: start: 20211012, end: 20211020
  24. PHLOROGLUCINOL DIHYDRATE [Concomitant]
     Active Substance: PHLOROGLUCINOL DIHYDRATE
     Indication: Amylase increased
     Dosage: 200 MILLIGRAM
     Route: 042
     Dates: start: 20211009, end: 20211009
  25. PHLOROGLUCINOL DIHYDRATE [Concomitant]
     Active Substance: PHLOROGLUCINOL DIHYDRATE
     Indication: Lipase increased
  26. FOLIC ACID [Concomitant]
     Active Substance: FOLIC ACID
     Indication: Anaemia
     Dosage: 5 MILLIGRAM, TID
     Route: 048
     Dates: start: 20210715, end: 20211009

REACTIONS (1)
  - Lipase increased [Recovered/Resolved]

NARRATIVE: CASE EVENT DATE: 20211012
